FAERS Safety Report 6258854-2 (Version None)
Quarter: 2009Q3

REPORT INFORMATION
  Report Type: 
  Country: None (occurrence: None)
  Receive Date: 20090707
  Receipt Date: 20070826
  Transmission Date: 20100115
  Serious: Yes (Other)
  Sender: FDA-Public Use
  Company Number: NO-ELI_LILLY_AND_COMPANY-NO200907000721

PATIENT
  Sex: Female

DRUGS (10)
  1. OLANZAPINE [Suspect]
     Indication: PSYCHOTIC DISORDER
     Dosage: 5 MG, DAILY (1/D)
     Dates: start: 20021217, end: 20030120
  2. OLANZAPINE [Suspect]
     Dosage: 10 MG, DAILY (1/D)
     Dates: start: 20030121, end: 20030805
  3. NOZINAN [Concomitant]
  4. HALDOL [Concomitant]
  5. SOBRIL [Concomitant]
     Dosage: 10 MG, 3/D
  6. VALLERGAN [Concomitant]
  7. SOLAN/01198901/ [Concomitant]
  8. SERETIDE [Concomitant]
  9. VENTOLIN [Concomitant]
     Dosage: 0.2 MG, UNK
  10. SPERSALLERG [Concomitant]

REACTIONS (4)
  - ARTHRALGIA [None]
  - EMOTIONAL DISORDER [None]
  - OEDEMA [None]
  - WEIGHT INCREASED [None]
